FAERS Safety Report 24706317 (Version 1)
Quarter: 2024Q4

REPORT INFORMATION
  Report Type: Spontaneous
  Country: US (occurrence: US)
  Receive Date: 20241206
  Receipt Date: 20241206
  Transmission Date: 20250115
  Serious: Yes (Other)
  Sender: BRISTOL-MYERS SQUIBB COMPANY
  Company Number: US-BRISTOL-MYERS SQUIBB COMPANY-2024-185223

PATIENT
  Age: 69 Year
  Sex: Female

DRUGS (2)
  1. SPRYCEL [Suspect]
     Active Substance: DASATINIB
     Indication: Chronic myeloid leukaemia
     Route: 048
     Dates: start: 202008
  2. PREDNISONE [Suspect]
     Active Substance: PREDNISONE
     Indication: Bronchitis

REACTIONS (3)
  - Drug hypersensitivity [Unknown]
  - Cardiac flutter [Unknown]
  - Bronchitis [Unknown]
